FAERS Safety Report 15292983 (Version 2)
Quarter: 2019Q1

REPORT INFORMATION
  Report Type: Spontaneous
  Country: CA (occurrence: CA)
  Receive Date: 20180819
  Receipt Date: 20190305
  Transmission Date: 20190417
  Serious: Yes (Life-Threatening, Hospitalization, Other)
  Sender: FDA-Public Use
  Company Number: CA-BAXTER-2018BAX021570

PATIENT
  Age: 41 Year
  Sex: Female

DRUGS (9)
  1. 50% DEXTROSE INJ, USP [Suspect]
     Active Substance: DEXTROSE
     Indication: HYPOGLYCAEMIA
     Dosage: AMPOULE (FIRST DOSE)
     Route: 042
  2. 50% DEXTROSE INJ, USP [Suspect]
     Active Substance: DEXTROSE
     Indication: DISEASE RECURRENCE
     Dosage: AMPOULE (SECOND DOSE)
     Route: 042
  3. DEXTROSE 10% INJECTION 10 MG [Suspect]
     Active Substance: DEXTROSE
     Indication: HYPOGLYCAEMIA
     Dosage: APPROXIMATELY 2000ML AT RATES OF 250-425 ML/H
     Route: 042
  4. 50% DEXTROSE INJ, USP [Suspect]
     Active Substance: DEXTROSE
     Dosage: 12 AMPOULE
     Route: 042
  5. NOVORAPID [Concomitant]
     Active Substance: INSULIN ASPART
     Indication: SUICIDAL IDEATION
  6. CLONAZEPAM. [Concomitant]
     Active Substance: CLONAZEPAM
     Indication: SUICIDAL IDEATION
     Route: 048
  7. NOVORAPID [Concomitant]
     Active Substance: INSULIN ASPART
     Indication: INTENTIONAL OVERDOSE
     Dosage: ON ABDOMEN SITE
     Route: 058
  8. ZOPICLONE [Concomitant]
     Active Substance: ZOPICLONE
     Indication: SUICIDAL IDEATION
     Route: 048
  9. OCTREOTIDE. [Concomitant]
     Active Substance: OCTREOTIDE
     Indication: HYPOGLYCAEMIA
     Dosage: TOTAL OF 4 DOSES
     Route: 058

REACTIONS (4)
  - Hypoglycaemia [Recovering/Resolving]
  - Drug ineffective [Recovering/Resolving]
  - Disease recurrence [Recovering/Resolving]
  - Oedema peripheral [Unknown]
